FAERS Safety Report 5546361-1 (Version None)
Quarter: 2007Q4

REPORT INFORMATION
  Report Type: 
  Country: None (occurrence: None)
  Receive Date: 20071206
  Receipt Date: 20071206
  Transmission Date: 20080405
  Serious: Yes (Hospitalization, Other)
  Sender: FDA-Public Use
  Company Number: None

PATIENT
  Age: 16 Year
  Sex: Male
  Weight: 65.7716 kg

DRUGS (1)
  1. LEVAQUIN [Suspect]
     Indication: VIRAL INFECTION
     Dosage: 500 MG 1 X DAY FOR 5 DAYS
     Dates: start: 20071125, end: 20071126

REACTIONS (8)
  - ANGER [None]
  - ARTHROPATHY [None]
  - CRYING [None]
  - FEAR [None]
  - GRIMACING [None]
  - MUSCLE TWITCHING [None]
  - SPEECH DISORDER [None]
  - VOMITING [None]
